FAERS Safety Report 7456958-X (Version None)
Quarter: 2011Q2

REPORT INFORMATION
  Report Type: 
  Country: None (occurrence: None)
  Receive Date: 20110504
  Receipt Date: 20110406
  Transmission Date: 20111010
  Serious: Yes (Hospitalization, Other)
  Sender: FDA-Public Use
  Company Number: US-BAYER-201014811NA

PATIENT
  Age: 18 Year
  Sex: Female
  Weight: 79.365 kg

DRUGS (8)
  1. SYNTHROID [Concomitant]
     Indication: HYPOTHYROIDISM
  2. ADVIL LIQUI-GELS [Concomitant]
  3. YASMIN [Suspect]
     Indication: CONTRACEPTION
     Route: 048
  4. VICODIN [Concomitant]
  5. YAZ [Suspect]
     Indication: CONTRACEPTION
  6. DILAUDID [Concomitant]
     Indication: CHEST PAIN
     Dosage: 1 MG, UNK
  7. MOTRIN [Concomitant]
  8. COUMADIN [Concomitant]

REACTIONS (5)
  - PULMONARY EMBOLISM [None]
  - BACK PAIN [None]
  - URINARY TRACT INFECTION [None]
  - DYSPNOEA [None]
  - PLEURISY [None]
